APPROVED DRUG PRODUCT: PARICALCITOL
Active Ingredient: PARICALCITOL
Strength: 0.01MG/2ML (0.005MG/ML)
Dosage Form/Route: SOLUTION;INTRAVENOUS
Application: A203897 | Product #003 | TE Code: AP
Applicant: RISING PHARMA HOLDINGS INC
Approved: Nov 2, 2017 | RLD: No | RS: No | Type: RX